FAERS Safety Report 9393253 (Version 2)
Quarter: 2013Q3

REPORT INFORMATION
  Report Type: Spontaneous
  Country: US (occurrence: US)
  Receive Date: 20130710
  Receipt Date: 20130805
  Transmission Date: 20140515
  Serious: Yes (Hospitalization, Other)
  Sender: FDA-Public Use
  Company Number: US-PFIZER INC-2013202447

PATIENT
  Age: 56 Year
  Sex: Female
  Weight: 72.56 kg

DRUGS (14)
  1. CHANTIX [Suspect]
     Indication: SMOKING CESSATION THERAPY
     Dosage: UNK
  2. ESKALITH CR [Interacting]
     Dosage: 450 TWICE A DAY
     Dates: start: 1993
  3. RISPERDAL [Suspect]
     Dosage: UNK
  4. PROZAC [Suspect]
     Dosage: UNK
  5. SEROQUEL [Suspect]
     Dosage: UNK
  6. LISINOPRIL [Concomitant]
     Dosage: 40 MG, UNK
  7. LEVOTHYROXINE [Concomitant]
     Dosage: 50 UG, UNK
  8. NAPROXEN [Concomitant]
     Dosage: 500 MG, UNK
  9. HYDROCODONE W/ACETAMINOPHEN [Concomitant]
     Dosage: 5-500 UNK
  10. VENTOLIN HFA [Concomitant]
     Dosage: 90 UG, UNK
  11. CARISOPRODOL [Concomitant]
     Dosage: 350 MG, UNK
  12. ADVAIR DISKUS [Concomitant]
     Dosage: 500-50 UNK
  13. NYSTATIN [Concomitant]
     Dosage: 100,000 UNITS/ML, UNK
  14. TOPIRAMATE [Concomitant]
     Dosage: 25 MG, UNK

REACTIONS (13)
  - Poisoning [Unknown]
  - Diarrhoea [Unknown]
  - Nail discolouration [Unknown]
  - Coma [Unknown]
  - Vogt-Koyanagi-Harada syndrome [Unknown]
  - Amnesia [Unknown]
  - Asthenia [Unknown]
  - Influenza [Unknown]
  - Vomiting [Unknown]
  - Drug interaction [Unknown]
  - Activities of daily living impaired [Unknown]
  - Fall [Unknown]
  - Dizziness [Unknown]
